FAERS Safety Report 7147963 (Version 2)
Quarter: 2013Q3

REPORT INFORMATION
  Report Type: Spontaneous
  Country: None (occurrence: None)
  Receive Date: 20090928
  Receipt Date: 20130705
  Transmission Date: 20140515
  Serious: Yes (Hospitalization, Other)
  Sender: FDA-Public Use
  Company Number: AUR-APU-2009-00724

PATIENT
  Age: 17 Year
  Sex: Female

DRUGS (1)
  1. FLUOXETINE (FLUOXETINE) [Suspect]
     Indication: PRODUCT USED FOR UNKNOWN INDICATION

REACTIONS (11)
  - Hypertension [None]
  - Respiratory failure [None]
  - Intentional self-injury [None]
  - Sleep apnoea syndrome [None]
  - Erysipelas [None]
  - Inappropriate antidiuretic hormone secretion [None]
  - Generalised oedema [None]
  - Cyanosis [None]
  - Oliguria [None]
  - Back pain [None]
  - Flank pain [None]
